FAERS Safety Report 15608993 (Version 1)
Quarter: 2018Q4

REPORT INFORMATION
  Report Type: Spontaneous
  Country: US (occurrence: US)
  Receive Date: 20181112
  Receipt Date: 20181112
  Transmission Date: 20190205
  Serious: No
  Sender: FDA-Public Use
  Company Number: US-MYLANLABS-2018M1077738

PATIENT
  Age: 54 Year
  Sex: Female

DRUGS (4)
  1. FLUOROURACIL. [Suspect]
     Active Substance: FLUOROURACIL
     Indication: CHEMOTHERAPY
     Dosage: UNK
  2. CALCIUM FOLINATE [Suspect]
     Active Substance: LEUCOVORIN CALCIUM
     Indication: CHEMOTHERAPY
  3. IRINOTECAN                         /01280202/ [Suspect]
     Active Substance: IRINOTECAN
     Indication: CHEMOTHERAPY
     Dosage: UNK
  4. FULPHILA [Suspect]
     Active Substance: PEGFILGRASTIM-JMDB
     Indication: COLON CANCER
     Dosage: UNK
     Route: 065

REACTIONS (1)
  - White blood cell count increased [Unknown]
